FAERS Safety Report 25113302 (Version 1)
Quarter: 2025Q1

REPORT INFORMATION
  Report Type: Report from Study
  Country: US (occurrence: US)
  Receive Date: 20250324
  Receipt Date: 20250324
  Transmission Date: 20250409
  Serious: Yes (Hospitalization, Other)
  Sender: GILEAD
  Company Number: US-GILEAD-2025-0705943

PATIENT
  Age: 24 Year
  Sex: Female

DRUGS (6)
  1. AZTREONAM LYSINE [Suspect]
     Active Substance: AZTREONAM LYSINE
     Indication: Cystic fibrosis
     Dosage: USE 1 VIAL (75MG) VIA NEBULIZER THREE TIMES DAILY FOR 28 DAYS ON AND 28 DAYS OFF
     Route: 055
     Dates: start: 20230414
  2. AZITHROMYCIN [Concomitant]
     Active Substance: AZITHROMYCIN
  3. MONTELUKAST [Concomitant]
     Active Substance: MONTELUKAST
  4. PULMOZYME [Concomitant]
     Active Substance: DORNASE ALFA
  5. CETIRIZINE [Concomitant]
     Active Substance: CETIRIZINE HYDROCHLORIDE
  6. FLUTICASONE [Concomitant]
     Active Substance: FLUTICASONE

REACTIONS (6)
  - Cystic fibrosis [Unknown]
  - Coronavirus infection [Unknown]
  - Cystic fibrosis respiratory infection suppression [Unknown]
  - Sinus disorder [Unknown]
  - Headache [Unknown]
  - Sleep disorder [Unknown]

NARRATIVE: CASE EVENT DATE: 20250211
